FAERS Safety Report 5373551-3 (Version None)
Quarter: 2007Q2

REPORT INFORMATION
  Report Type: 
  Country: None (occurrence: None)
  Receive Date: 20070628
  Receipt Date: 20070620
  Transmission Date: 20071010
  Serious: Yes (Hospitalization)
  Sender: FDA-Public Use
  Company Number: B0476404A

PATIENT
  Age: 57 Year
  Sex: Female
  Weight: 76 kg

DRUGS (2)
  1. LAPATINIB [Suspect]
     Indication: BREAST CANCER METASTATIC
     Dosage: 1250MG PER DAY
     Route: 048
     Dates: start: 20070213
  2. CAPECITABINE [Suspect]
     Indication: BREAST CANCER METASTATIC
     Dosage: 1300MG PER DAY
     Route: 048
     Dates: start: 20070213

REACTIONS (6)
  - BLOOD DISORDER [None]
  - HAEMOGLOBIN DECREASED [None]
  - INFECTION [None]
  - PYREXIA [None]
  - SEPSIS [None]
  - STREPTOCOCCAL INFECTION [None]
